FAERS Safety Report 4673736-5 (Version None)
Quarter: 2005Q2

REPORT INFORMATION
  Report Type: 
  Country: None (occurrence: None)
  Receive Date: 20050523
  Receipt Date: 20050512
  Transmission Date: 20051028
  Serious: Yes (Other)
  Sender: FDA-Public Use
  Company Number: S05-USA-01454-01

PATIENT
  Age: 27 Year
  Sex: Female
  Weight: 102.5129 kg

DRUGS (3)
  1. LEXAPRO [Suspect]
     Indication: DEPRESSION
     Dosage: 30 MG QD PO
     Route: 048
     Dates: start: 20050225, end: 20050412
  2. WELBUTRIN (BUPROPION HYDROCHLORIDE) [Suspect]
     Indication: DEPRESSION
     Dosage: 300 MG QAM
     Dates: start: 20020401, end: 20050301
  3. LEXAPRO [Suspect]
     Indication: DEPRESSION
     Dosage: 20 MG QD PO
     Route: 048
     Dates: start: 20041123, end: 20050224

REACTIONS (8)
  - CONVULSION [None]
  - DEPRESSED LEVEL OF CONSCIOUSNESS [None]
  - DISORIENTATION [None]
  - FALL [None]
  - HEAD INJURY [None]
  - HYPERSOMNIA [None]
  - TONGUE BITING [None]
  - TREMOR [None]
